FAERS Safety Report 12215351 (Version 1)
Quarter: 2016Q1

REPORT INFORMATION
  Report Type: Spontaneous
  Country: None (occurrence: NZ)
  Receive Date: 20160328
  Receipt Date: 20160328
  Transmission Date: 20160526
  Serious: Yes (Other)
  Sender: FDA-Public Use
  Company Number: NZ-POPULATION COUNCIL, INC.-1049842

PATIENT
  Age: 23 Year
  Sex: Female

DRUGS (1)
  1. JADELLE [Suspect]
     Active Substance: LEVONORGESTREL
     Indication: CONTRACEPTION

REACTIONS (2)
  - Rheumatic heart disease [None]
  - Complication of device removal [None]

NARRATIVE: CASE EVENT DATE: 20120201
